FAERS Safety Report 4889983-3 (Version None)
Quarter: 2006Q1

REPORT INFORMATION
  Report Type: 
  Country: None (occurrence: None)
  Receive Date: 20060123
  Receipt Date: 20060113
  Transmission Date: 20060701
  Serious: Yes (Other)
  Sender: FDA-Public Use
  Company Number: 2006008517

PATIENT
  Sex: Female
  Weight: 93.8946 kg

DRUGS (12)
  1. NEURONTIN [Suspect]
     Indication: DIABETIC NEUROPATHY
     Dosage: 2400 MG (800 MG, 3 IN 1 D), ORAL
     Route: 048
  2. LYRICA [Suspect]
     Indication: DIABETIC NEUROPATHY
     Dosage: 50 MG (50 MG, 1 IN 1 D), ORAL
     Route: 048
     Dates: start: 20050101
  3. IRON (IRON) [Concomitant]
  4. FUROSEMIDE [Concomitant]
  5. GEMFIBROZIL [Concomitant]
  6. SYNTHROID [Concomitant]
  7. MOBIC [Concomitant]
  8. CRESTOR [Concomitant]
  9. DIOVAN [Concomitant]
  10. TOPROL-XL [Concomitant]
  11. ECOTRIN (ACETYLSALICYLIC ACID) [Concomitant]
  12. IMDUR [Concomitant]

REACTIONS (7)
  - ARTHRALGIA [None]
  - BACK PAIN [None]
  - BLOOD POTASSIUM INCREASED [None]
  - DIABETIC NEUROPATHY [None]
  - KNEE ARTHROPLASTY [None]
  - LABORATORY TEST ABNORMAL [None]
  - RENAL IMPAIRMENT [None]
